FAERS Safety Report 7914759-X (Version None)
Quarter: 2011Q4

REPORT INFORMATION
  Report Type: 
  Country: None (occurrence: None)
  Receive Date: 20111115
  Receipt Date: 20111110
  Transmission Date: 20120403
  Serious: Yes (Death)
  Sender: FDA-Public Use
  Company Number: PHHY2011AR099429

PATIENT
  Sex: Male

DRUGS (1)
  1. EXELON [Suspect]
     Indication: TRANSIENT ISCHAEMIC ATTACK
     Dosage: 4.6 MG, DAILY
     Route: 062
     Dates: start: 20110101

REACTIONS (3)
  - INFECTION [None]
  - GASTROINTESTINAL PERFORATION [None]
  - GASTROINTESTINAL NEOPLASM [None]
